FAERS Safety Report 15997815 (Version 2)
Quarter: 2019Q2

REPORT INFORMATION
  Report Type: Spontaneous
  Country: US (occurrence: US)
  Receive Date: 20190222
  Receipt Date: 20190410
  Transmission Date: 20190711
  Serious: Yes (Other)
  Sender: FDA-Public Use
  Company Number: US-ASTRAZENECA-2018SF35034

PATIENT
  Sex: Male

DRUGS (18)
  1. SIMVASTATIN. [Concomitant]
     Active Substance: SIMVASTATIN
  2. COLCHICINE. [Concomitant]
     Active Substance: COLCHICINE
  3. GEMFIBROZIL. [Concomitant]
     Active Substance: GEMFIBROZIL
  4. LOVASTATIN. [Concomitant]
     Active Substance: LOVASTATIN
  5. VITAMIN D2 [Concomitant]
     Active Substance: ERGOCALCIFEROL
  6. PRILOSEC OTC [Suspect]
     Active Substance: OMEPRAZOLE MAGNESIUM
     Route: 048
     Dates: start: 2006, end: 2011
  7. CEPHALEXIN. [Concomitant]
     Active Substance: CEPHALEXIN
  8. INDOMETHACIN. [Concomitant]
     Active Substance: INDOMETHACIN
  9. NEXIUM [Suspect]
     Active Substance: ESOMEPRAZOLE MAGNESIUM
     Route: 048
     Dates: start: 2006, end: 2011
  10. METFORMIN [Concomitant]
     Active Substance: METFORMIN HYDROCHLORIDE
  11. GEMFIBROZIL. [Concomitant]
     Active Substance: GEMFIBROZIL
  12. LISINOPRIL/HCTZ [Concomitant]
     Active Substance: HYDROCHLOROTHIAZIDE\LISINOPRIL
  13. AMLODIPINE BESYLATE. [Concomitant]
     Active Substance: AMLODIPINE BESYLATE
  14. CLOTRIMAZOLE. [Concomitant]
     Active Substance: CLOTRIMAZOLE
  15. VERAPAMIL [Concomitant]
     Active Substance: VERAPAMIL HYDROCHLORIDE
  16. SENSIPAR [Concomitant]
     Active Substance: CINACALCET HYDROCHLORIDE
  17. GLIPIZIDE. [Concomitant]
     Active Substance: GLIPIZIDE
  18. CLINDAMYCIN. [Concomitant]
     Active Substance: CLINDAMYCIN

REACTIONS (5)
  - Renal failure [Unknown]
  - Nephrogenic anaemia [Unknown]
  - Acute kidney injury [Unknown]
  - End stage renal disease [Unknown]
  - Chronic kidney disease [Unknown]
